FAERS Safety Report 9851662 (Version 3)
Quarter: 2014Q1

REPORT INFORMATION
  Report Type: Spontaneous
  Country: BR (occurrence: BR)
  Receive Date: 20140129
  Receipt Date: 20140204
  Transmission Date: 20141002
  Serious: Yes (Other)
  Sender: FDA-Public Use
  Company Number: BR-AMGEN-BRASP2013044543

PATIENT
  Age: 62 Year
  Sex: Male
  Weight: 83 kg

DRUGS (5)
  1. ENBREL [Suspect]
     Indication: ANKYLOSING SPONDYLITIS
     Dosage: 50 MG, EVERY 7 DAYS
     Route: 058
     Dates: start: 201107
  2. AMLODIPINE BESILATE [Concomitant]
     Dosage: 5 MG, ONCE DAILY
     Dates: start: 2008
  3. SINVASCOR [Concomitant]
     Dosage: 20 MG, ONCE DAILY
     Dates: start: 2008
  4. HYDROCHLOROTHIAZIDE [Concomitant]
     Dosage: 25 MG, ONCE DAILY
     Dates: start: 2008
  5. LOSARTAN [Concomitant]
     Indication: HYPERTENSION
     Dosage: 50 MG, ONCE DAILY
     Dates: start: 2008

REACTIONS (6)
  - Arthropathy [Unknown]
  - Pain [Unknown]
  - Joint swelling [Unknown]
  - Weight decreased [Not Recovered/Not Resolved]
  - Pain in extremity [Unknown]
  - Arthralgia [Unknown]
